FAERS Safety Report 5065442-2 (Version None)
Quarter: 2006Q3

REPORT INFORMATION
  Report Type: 
  Country: None (occurrence: None)
  Receive Date: 20060707
  Receipt Date: 20051207
  Transmission Date: 20061208
  Serious: Yes (Other)
  Sender: FDA-Public Use
  Company Number: SUS1-2005-00889

PATIENT
  Age: 59 Year
  Sex: Male
  Weight: 104.3 kg

DRUGS (1)
  1. PENTASA [Suspect]
     Indication: CROHN'S DISEASE
     Dosage: ORAL
     Route: 048
     Dates: start: 20050501, end: 20050810

REACTIONS (1)
  - PANCYTOPENIA [None]
